FAERS Safety Report 7451368-3 (Version None)
Quarter: 2011Q2

REPORT INFORMATION
  Report Type: 
  Country: None (occurrence: None)
  Receive Date: 20110502
  Receipt Date: 20110420
  Transmission Date: 20111010
  Serious: Yes (Other)
  Sender: FDA-Public Use
  Company Number: JP-CTI_01350_2011

PATIENT
  Age: 40 Year
  Sex: Female

DRUGS (2)
  1. ACETAMINOPHEN [Concomitant]
     Indication: OTITIS EXTERNA
     Dosage: DF
     Route: 048
  2. MEIACT MS TABLET (CEFDITOREN PIVOXIL) [Suspect]
     Indication: OTITIS EXTERNA
     Route: 048
     Dates: start: 20110409, end: 20110409

REACTIONS (3)
  - DYSPNOEA [None]
  - RASH [None]
  - FEELING ABNORMAL [None]
